FAERS Safety Report 4390353-5 (Version None)
Quarter: 2004Q2

REPORT INFORMATION
  Report Type: 
  Country: None (occurrence: None)
  Receive Date: 20040630
  Receipt Date: 20040622
  Transmission Date: 20050107
  Serious: Yes (Hospitalization)
  Sender: FDA-Public Use
  Company Number: 2004-03-0886

PATIENT
  Age: 45 Year
  Sex: Female

DRUGS (10)
  1. PEG-INTRON [Suspect]
     Indication: HEPATITIS C
     Dosage: 150 MCG QD-QWK SUBCUTANEO
     Route: 058
     Dates: start: 20040225, end: 20040405
  2. REBETOL [Suspect]
     Indication: HEPATITIS C
     Dosage: 1000 MG QD ORAL
     Route: 048
     Dates: start: 20040225, end: 20040405
  3. LITHIUM CARBONATE [Concomitant]
  4. PHENERGAN [Concomitant]
  5. PREVACID [Concomitant]
  6. PROZAC [Concomitant]
  7. SYNTHROID [Concomitant]
  8. XANAX [Concomitant]
  9. LORTAB [Concomitant]
  10. OXYCONTIN [Concomitant]

REACTIONS (6)
  - ABASIA [None]
  - HALLUCINATION [None]
  - MEDICATION ERROR [None]
  - PHARMACEUTICAL PRODUCT COMPLAINT [None]
  - PSYCHOTIC DISORDER [None]
  - TREMOR [None]
